FAERS Safety Report 7227479-4 (Version None)
Quarter: 2011Q1

REPORT INFORMATION
  Report Type: 
  Country: None (occurrence: None)
  Receive Date: 20110105
  Receipt Date: 20101228
  Transmission Date: 20110831
  Serious: Yes (Other)
  Sender: FDA-Public Use
  Company Number: B0691953A

PATIENT
  Age: 77 Year
  Sex: Female

DRUGS (6)
  1. ZOLEDRONATE [Concomitant]
  2. PREDNISONE [Concomitant]
  3. DEXAMETHASONE [Concomitant]
  4. MELPHALAN HYDROCHLORIDE [Suspect]
     Indication: MULTIPLE MYELOMA
     Dosage: .25 MG
  5. RADIOTHERAPY [Concomitant]
  6. BORTEZOMIB [Concomitant]

REACTIONS (4)
  - NO THERAPEUTIC RESPONSE [None]
  - BONE LESION [None]
  - MYELODYSPLASTIC SYNDROME [None]
  - BLOOD PRODUCT TRANSFUSION DEPENDENT [None]
